FAERS Safety Report 5242769-2 (Version None)
Quarter: 2007Q1

REPORT INFORMATION
  Report Type: 
  Country: None (occurrence: None)
  Receive Date: 20070214
  Receipt Date: 20070201
  Transmission Date: 20070707
  Serious: Yes (Hospitalization, Disabling, Other)
  Sender: FDA-Public Use
  Company Number: 2006-03020

PATIENT
  Age: 79 Year
  Sex: Female
  Weight: 59 kg

DRUGS (6)
  1. VELCADE [Suspect]
     Indication: MULTIPLE MYELOMA
     Dosage: 2.00 MG, INTRAVENOUS
     Route: 042
     Dates: start: 20061003, end: 20061116
  2. CLODRONATE DISODIUM (CLODRONATE DISODIUM) [Concomitant]
  3. ACYCLOVIR [Concomitant]
  4. ALLOPURINOL [Concomitant]
  5. DOMPERIDONE (DOMPERIDONE) [Concomitant]
  6. ONDANSETRON HCL [Concomitant]

REACTIONS (8)
  - AORTIC STENOSIS [None]
  - AORTIC VALVE INCOMPETENCE [None]
  - BUNDLE BRANCH BLOCK LEFT [None]
  - CARDIAC FAILURE ACUTE [None]
  - CARDIOMYOPATHY [None]
  - CORONARY ARTERY DISEASE [None]
  - LEFT VENTRICULAR FAILURE [None]
  - VENTRICULAR HYPOKINESIA [None]
